FAERS Safety Report 18130394 (Version 4)
Quarter: 2022Q4

REPORT INFORMATION
  Report Type: Report from Study
  Country: JP (occurrence: None)
  Receive Date: 20200810
  Receipt Date: 20221028
  Transmission Date: 20230113
  Serious: Yes (Hospitalization, Other)
  Sender: FDA-Public Use
  Company Number: JP-EISAI MEDICAL RESEARCH-EC-2019-064229

PATIENT
  Age: 59 Year
  Sex: Male
  Weight: 84 kg

DRUGS (27)
  1. LENVATINIB [Suspect]
     Active Substance: LENVATINIB
     Indication: Renal cell carcinoma
     Route: 048
     Dates: start: 20190130, end: 20191022
  2. LENVATINIB [Suspect]
     Active Substance: LENVATINIB
     Route: 048
     Dates: start: 20191031, end: 20200506
  3. LENVATINIB [Suspect]
     Active Substance: LENVATINIB
     Route: 048
     Dates: start: 20200507, end: 20200606
  4. LENVATINIB [Suspect]
     Active Substance: LENVATINIB
     Route: 048
     Dates: start: 20200620, end: 20200728
  5. PEMBROLIZUMAB [Suspect]
     Active Substance: PEMBROLIZUMAB
     Indication: Renal cell carcinoma
     Route: 041
     Dates: start: 20190130, end: 20200709
  6. JANUVIA [Concomitant]
     Active Substance: SITAGLIPTIN PHOSPHATE
     Indication: Type 2 diabetes mellitus
     Route: 048
     Dates: start: 20140513, end: 20191022
  7. JANUVIA [Concomitant]
     Active Substance: SITAGLIPTIN PHOSPHATE
     Route: 048
     Dates: start: 20191029
  8. PITAVASTATIN CALCIUM [Concomitant]
     Active Substance: PITAVASTATIN CALCIUM
     Indication: Hyperlipidaemia
     Route: 048
     Dates: start: 20140513, end: 20191022
  9. PITAVASTATIN CALCIUM [Concomitant]
     Active Substance: PITAVASTATIN CALCIUM
     Route: 048
     Dates: start: 20191029, end: 20200803
  10. BISOPROLOL FUMARATE [Concomitant]
     Active Substance: BISOPROLOL FUMARATE
     Indication: Hypertension
     Route: 048
     Dates: start: 20140513, end: 20191022
  11. BISOPROLOL FUMARATE [Concomitant]
     Active Substance: BISOPROLOL FUMARATE
     Route: 048
     Dates: start: 20191029, end: 20200803
  12. TRICHLORMETHIAZIDE [Concomitant]
     Active Substance: TRICHLORMETHIAZIDE
     Indication: Hypertension
     Route: 048
     Dates: start: 20150217, end: 20200610
  13. IMIDAPRIL HYDROCHLORIDE [Concomitant]
     Active Substance: IMIDAPRIL HYDROCHLORIDE
     Indication: Hypertension
     Route: 048
     Dates: start: 20150217, end: 20200802
  14. FEBUXOSTAT [Concomitant]
     Active Substance: FEBUXOSTAT
     Indication: Hypertension
     Route: 048
     Dates: start: 20150217, end: 20191022
  15. FEBUXOSTAT [Concomitant]
     Active Substance: FEBUXOSTAT
     Route: 048
     Dates: start: 20191029, end: 20200803
  16. VONOPRAZAN FUMARATE [Concomitant]
     Active Substance: VONOPRAZAN FUMARATE
     Indication: Abdominal distension
     Route: 048
     Dates: start: 20190220, end: 20200802
  17. VEGIN [Concomitant]
     Indication: Palmar-plantar erythrodysaesthesia syndrome
     Route: 062
     Dates: start: 20190605, end: 20200803
  18. SODIUM GUALENATE MONOHYDRATE [Concomitant]
     Active Substance: SODIUM GUALENATE MONOHYDRATE
     Indication: Stomatitis
     Dates: start: 20190605, end: 20200803
  19. CLOBETASOL [Concomitant]
     Active Substance: CLOBETASOL
     Indication: Palmar-plantar erythrodysaesthesia syndrome
     Route: 062
     Dates: start: 20190828, end: 20200803
  20. LEVOTHYROXINE SODIUM [Concomitant]
     Active Substance: LEVOTHYROXINE SODIUM
     Indication: Hypothyroidism
     Route: 048
     Dates: start: 20190314
  21. LEVOTHYROXINE SODIUM [Concomitant]
     Active Substance: LEVOTHYROXINE SODIUM
     Route: 048
     Dates: start: 20200528, end: 20200803
  22. LOPEMIN [Concomitant]
     Indication: Diarrhoea
     Route: 048
     Dates: start: 20200324, end: 20200803
  23. XYZAL [Concomitant]
     Active Substance: LEVOCETIRIZINE DIHYDROCHLORIDE
     Indication: Rash
     Route: 048
     Dates: start: 20200709, end: 20200803
  24. DEXAMETHASONE [Concomitant]
     Active Substance: DEXAMETHASONE
     Indication: Stomatitis
     Route: 048
     Dates: start: 20200709, end: 20200803
  25. SP [Concomitant]
     Indication: Stomatitis
     Route: 048
     Dates: start: 20200729, end: 20200803
  26. CARBOHYDRATES\FATTY ACIDS\MINERALS\PROTEIN\VITAMINS [Concomitant]
     Active Substance: CARBOHYDRATES\FATTY ACIDS\MINERALS\PROTEIN\VITAMINS
     Indication: Nutritional supplementation
     Route: 048
     Dates: start: 20200729, end: 20200803
  27. EPISIL [Concomitant]
     Indication: Stomatitis
     Route: 048
     Dates: start: 20200730, end: 20200803

REACTIONS (3)
  - Lung disorder [Recovered/Resolved]
  - Diarrhoea [Recovered/Resolved]
  - Acute kidney injury [Recovered/Resolved]

NARRATIVE: CASE EVENT DATE: 20191022
